FAERS Safety Report 8010630-6 (Version None)
Quarter: 2011Q4

REPORT INFORMATION
  Report Type: 
  Country: None (occurrence: None)
  Receive Date: 20111228
  Receipt Date: 20111219
  Transmission Date: 20120403
  Serious: Yes (Death)
  Sender: FDA-Public Use
  Company Number: US-PFIZER INC-2011308783

PATIENT
  Age: 19 Year
  Sex: Female

DRUGS (6)
  1. ACETAMINOPHEN AND HYDROCODONE BITARTRATE [Suspect]
     Dosage: (MAX 30 TABLETS)
     Route: 048
  2. ACETAMINOPHEN [Suspect]
  3. HYDROCODONE [Suspect]
  4. IBUPROFEN [Suspect]
     Dosage: 200 MG (MAX 500 TABLETS)
     Route: 048
  5. ACETYLSALICYLIC ACID SRT [Suspect]
     Dosage: 325 MG (MAX 100 TABLETS)
     Route: 048
  6. HYDROMORPHONE HCL [Suspect]

REACTIONS (2)
  - COMPLETED SUICIDE [None]
  - INTENTIONAL OVERDOSE [None]
